FAERS Safety Report 10359049 (Version 1)
Quarter: 2014Q3

REPORT INFORMATION
  Report Type: Spontaneous
  Country: US (occurrence: US)
  Receive Date: 20140804
  Receipt Date: 20140804
  Transmission Date: 20150326
  Serious: Yes (Other)
  Sender: FDA-Public Use
  Company Number: US-AMGEN-USASP2014057374

PATIENT
  Sex: Female
  Weight: 78.46 kg

DRUGS (1)
  1. PROLIA [Suspect]
     Active Substance: DENOSUMAB
     Indication: OSTEOPOROSIS POSTMENOPAUSAL
     Route: 065

REACTIONS (11)
  - Diabetes mellitus [Unknown]
  - Renal failure chronic [Unknown]
  - Groin pain [Unknown]
  - Insomnia [Unknown]
  - Body height decreased [Unknown]
  - Weight decreased [Unknown]
  - Hypertension [Unknown]
  - Back pain [Unknown]
  - Spinal deformity [Unknown]
  - Depression [Unknown]
  - Dyspepsia [Unknown]
